FAERS Safety Report 12409042 (Version 2)
Quarter: 2016Q3

REPORT INFORMATION
  Report Type: Report from Study
  Country: US (occurrence: US)
  Receive Date: 20160526
  Receipt Date: 20160706
  Transmission Date: 20161109
  Serious: Yes (Hospitalization)
  Sender: FDA-Public Use
  Company Number: US-BIOGEN-2016BI00239543

PATIENT
  Age: 65 Year
  Sex: Male

DRUGS (3)
  1. AVONEX [Suspect]
     Active Substance: INTERFERON BETA-1A
     Route: 058
     Dates: start: 20160323
  2. AMANTADINE [Concomitant]
     Active Substance: AMANTADINE
     Indication: PRODUCT USED FOR UNKNOWN INDICATION
     Route: 065
  3. AVONEX [Suspect]
     Active Substance: INTERFERON BETA-1A
     Indication: MULTIPLE SCLEROSIS
     Route: 065
     Dates: start: 20041105

REACTIONS (10)
  - Resuscitation [Recovered/Resolved]
  - Pneumonia [Unknown]
  - Mobility decreased [Unknown]
  - Sputum retention [Unknown]
  - Speech disorder [Unknown]
  - Dysphonia [Not Recovered/Not Resolved]
  - Dysphagia [Unknown]
  - Incorrect route of drug administration [Unknown]
  - Feeling abnormal [Unknown]
  - Malaise [Unknown]

NARRATIVE: CASE EVENT DATE: 201602
